FAERS Safety Report 11311851 (Version 2)
Quarter: 2015Q3

REPORT INFORMATION
  Report Type: Report from Study
  Country: NL (occurrence: NL)
  Receive Date: 20150727
  Receipt Date: 20150806
  Transmission Date: 20151125
  Serious: Yes (Hospitalization)
  Sender: FDA-Public Use
  Company Number: NL-BIOGENIDEC-2015BI103488

PATIENT
  Age: 51 Year
  Sex: Female

DRUGS (1)
  1. AVONEX [Suspect]
     Active Substance: INTERFERON BETA-1A
     Indication: RELAPSING-REMITTING MULTIPLE SCLEROSIS
     Route: 030
     Dates: start: 20101126

REACTIONS (3)
  - Osteoarthritis [Recovered/Resolved]
  - Multiple sclerosis relapse [Unknown]
  - Procedural pain [Unknown]

NARRATIVE: CASE EVENT DATE: 20150602
